FAERS Safety Report 14659670 (Version 1)
Quarter: 2018Q1

REPORT INFORMATION
  Report Type: Spontaneous
  Country: US (occurrence: US)
  Receive Date: 20180317
  Receipt Date: 20180317
  Transmission Date: 20180509
  Serious: Yes (Hospitalization, Other)
  Sender: FDA-Public Use
  Company Number: None

PATIENT
  Age: 23 Year
  Sex: Female

DRUGS (1)
  1. DAPTOMYCIN 500MG HOSPIRA [Suspect]
     Active Substance: DAPTOMYCIN
     Indication: OSTEOMYELITIS
     Route: 042
     Dates: start: 20180303, end: 20180308

REACTIONS (4)
  - Tremor [None]
  - Feeling cold [None]
  - Pallor [None]
  - Hypoaesthesia [None]

NARRATIVE: CASE EVENT DATE: 20180306
